FAERS Safety Report 12903512 (Version 7)
Quarter: 2017Q3

REPORT INFORMATION
  Report Type: Report from Study
  Country: CH (occurrence: CH)
  Receive Date: 20161102
  Receipt Date: 20170731
  Transmission Date: 20171127
  Serious: Yes (Hospitalization)
  Sender: FDA-Public Use
  Company Number: CH-ROCHE-1848958

PATIENT
  Age: 64 Year
  Sex: Male
  Weight: 80 kg

DRUGS (78)
  1. FLUDARABINE [Suspect]
     Active Substance: FLUDARABINE PHOSPHATE
     Dosage: CYCLE 3 DAY3 ; PLANNED DOSE 25 MG/M2 , ACTUAL DOSE  25 MG/M2
     Route: 042
     Dates: start: 20140110, end: 20140110
  2. FLUDARABINE [Suspect]
     Active Substance: FLUDARABINE PHOSPHATE
     Dosage: CYCLE 4 DAY2 ; PLANNED DOSE 25 MG/M2 , ACTUAL DOSE  25 MG/M2
     Route: 042
     Dates: start: 20140206, end: 20140206
  3. FLUDARABINE [Suspect]
     Active Substance: FLUDARABINE PHOSPHATE
     Dosage: CYCLE 5 DAY1 ; PLANNED DOSE 25 MG/M2 , ACTUAL DOSE  25 MG/M2
     Route: 042
     Dates: start: 20140304, end: 20140304
  4. CYCLOPHOSPHAMIDE. [Suspect]
     Active Substance: CYCLOPHOSPHAMIDE
     Dosage: CYCLE 4 DAY1 ; PLANNED DOSE 250 MG/M2 , ACTUAL DOSE  250 MG/M2
     Route: 042
     Dates: start: 20140205, end: 20140205
  5. DAFALGAN [Concomitant]
     Active Substance: ACETAMINOPHEN
     Dosage: ONE HOUR BEFOR?GA101 ADMINISTRATION
     Route: 048
     Dates: start: 20131113, end: 20140409
  6. FLUDARABINE [Suspect]
     Active Substance: FLUDARABINE PHOSPHATE
     Indication: CHRONIC LYMPHOCYTIC LEUKAEMIA
     Dosage: CYCLE 1 DAY1; PLANNED DOSE 25 MG/M2 , ACTUAL DOSE  25 MG/M2?MOST RECENT DOSE ON 04/APR/2014
     Route: 042
     Dates: start: 20131113, end: 20131113
  7. FLUDARABINE [Suspect]
     Active Substance: FLUDARABINE PHOSPHATE
     Dosage: CYCLE 3 DAY2 ; PLANNED DOSE 25 MG/M2 , ACTUAL DOSE  25 MG/M2
     Route: 042
     Dates: start: 20140109, end: 20140109
  8. CYCLOPHOSPHAMIDE. [Suspect]
     Active Substance: CYCLOPHOSPHAMIDE
     Indication: CHRONIC LYMPHOCYTIC LEUKAEMIA
     Dosage: CYCLE 1 DAY1; PLANNED DOSE 250 MG/M2 , ACTUAL DOSE  250 MG/M2?MOST RECENT DOSE ON 04/APR/2014
     Route: 042
     Dates: start: 20131113, end: 20131113
  9. CYCLOPHOSPHAMIDE. [Suspect]
     Active Substance: CYCLOPHOSPHAMIDE
     Dosage: CYCLE 1 DAY2; PLANNED DOSE 250 MG/M2 , ACTUAL DOSE  250 MG/M2
     Route: 042
     Dates: start: 20131114, end: 20131114
  10. CYCLOPHOSPHAMIDE. [Suspect]
     Active Substance: CYCLOPHOSPHAMIDE
     Dosage: CYCLE 2 DAY1 ; PLANNED DOSE 250 MG/M2 , ACTUAL DOSE  250 MG/M2
     Route: 042
     Dates: start: 20131211, end: 20131211
  11. CYCLOPHOSPHAMIDE. [Suspect]
     Active Substance: CYCLOPHOSPHAMIDE
     Dosage: CYCLE 3 DAY1 ; PLANNED DOSE 250 MG/M2 , ACTUAL DOSE  250 MG/M2
     Route: 042
     Dates: start: 20140108, end: 20140108
  12. CYCLOPHOSPHAMIDE. [Suspect]
     Active Substance: CYCLOPHOSPHAMIDE
     Dosage: CYCLE 6 DAY2 ; PLANNED DOSE 250 MG/M2 , ACTUAL DOSE  250 MG/M2
     Route: 042
     Dates: start: 20140403, end: 20140403
  13. CEFEPIME [Concomitant]
     Active Substance: CEFEPIME HYDROCHLORIDE
     Route: 042
     Dates: start: 20131224, end: 20131226
  14. TAVEGYL [Concomitant]
     Active Substance: CLEMASTINE FUMARATE
     Indication: PROPHYLAXIS
     Dosage: ONE HOUR BEFOR?GA101?ADMINISTRATION
     Route: 042
     Dates: start: 20131113, end: 20140402
  15. ACIDIUM FOLICOM (UNK INGREDIENTS) [Concomitant]
     Route: 065
     Dates: start: 20140605, end: 20140723
  16. FLUCONAZOL [Concomitant]
     Active Substance: FLUCONAZOLE
     Route: 048
     Dates: start: 20140605, end: 20140610
  17. MUNDISAL (SWITZERLAND) [Concomitant]
     Route: 061
     Dates: start: 20140312, end: 20140402
  18. EMEND [Concomitant]
     Active Substance: APREPITANT
     Route: 048
     Dates: start: 20140305, end: 20140306
  19. SYMBICORT [Concomitant]
     Active Substance: BUDESONIDE\FORMOTEROL FUMARATE DIHYDRATE
     Dosage: DOSE 200 STROKES INHALATION
     Route: 065
     Dates: start: 20150310, end: 20150325
  20. FLUDARABINE [Suspect]
     Active Substance: FLUDARABINE PHOSPHATE
     Dosage: CYCLE 1 DAY2; PLANNED DOSE 25 MG/M2 , ACTUAL DOSE  25 MG/M2
     Route: 042
     Dates: start: 20131114, end: 20131114
  21. FLUDARABINE [Suspect]
     Active Substance: FLUDARABINE PHOSPHATE
     Dosage: CYCLE 5 DAY3 ; PLANNED DOSE 25 MG/M2 , ACTUAL DOSE  25 MG/M2
     Route: 042
     Dates: start: 20140306, end: 20140306
  22. FLUDARABINE [Suspect]
     Active Substance: FLUDARABINE PHOSPHATE
     Dosage: CYCLE 6 DAY1 ; PLANNED DOSE 25 MG/M2 , ACTUAL DOSE  25 MG/M2
     Route: 042
     Dates: start: 20140402, end: 20140402
  23. FLUDARABINE [Suspect]
     Active Substance: FLUDARABINE PHOSPHATE
     Dosage: CYCLE 6 DAY3 ; PLANNED DOSE 25 MG/M2 , ACTUAL DOSE  25 MG/M2
     Route: 042
     Dates: start: 20140404, end: 20140404
  24. CYCLOPHOSPHAMIDE. [Suspect]
     Active Substance: CYCLOPHOSPHAMIDE
     Dosage: CYCLE 1 DAY3; PLANNED DOSE 250 MG/M2 , ACTUAL DOSE  250 MG/M2
     Route: 042
     Dates: start: 20131115, end: 20131115
  25. CYCLOPHOSPHAMIDE. [Suspect]
     Active Substance: CYCLOPHOSPHAMIDE
     Dosage: CYCLE 5 DAY3 ; PLANNED DOSE 250 MG/M2 , ACTUAL DOSE  250 MG/M2
     Route: 042
     Dates: start: 20140306, end: 20140306
  26. CYCLOPHOSPHAMIDE. [Suspect]
     Active Substance: CYCLOPHOSPHAMIDE
     Dosage: CYCLE 6 DAY1 ; PLANNED DOSE 250 MG/M2 , ACTUAL DOSE  250 MG/M2
     Route: 042
     Dates: start: 20140402, end: 20140402
  27. VALTREX [Concomitant]
     Active Substance: VALACYCLOVIR HYDROCHLORIDE
     Indication: PROPHYLAXIS
     Route: 048
     Dates: start: 20131113, end: 20140723
  28. ZOFRAN [Concomitant]
     Active Substance: ONDANSETRON HYDROCHLORIDE
     Route: 048
     Dates: start: 20140409, end: 20140603
  29. RINGER-LACTAT [Concomitant]
     Route: 042
     Dates: start: 20140507, end: 20140514
  30. EMEND [Concomitant]
     Active Substance: APREPITANT
     Route: 048
     Dates: start: 20140206, end: 20140207
  31. EMEND [Concomitant]
     Active Substance: APREPITANT
     Route: 048
     Dates: start: 20140304, end: 20140304
  32. CLAMOXYL (SWITZERLAND) [Concomitant]
     Route: 048
     Dates: start: 20140515, end: 20140521
  33. AUGMENTIN [Concomitant]
     Active Substance: AMOXICILLIN\CLAVULANATE POTASSIUM
     Route: 048
     Dates: start: 20150310, end: 20150325
  34. OBINUTUZUMAB. [Suspect]
     Active Substance: OBINUTUZUMAB
     Dosage: CYCLE 1 DAY8; PLANNED 1000 MG , ACTUAL DOSE  1000 MG ?PLANNED INFUSION RATE 400 ACTUAL INFUSION RATE
     Route: 042
     Dates: start: 20131120, end: 20131120
  35. FLUDARABINE [Suspect]
     Active Substance: FLUDARABINE PHOSPHATE
     Dosage: CYCLE 2 DAY1 ; PLANNED DOSE 25 MG/M2 , ACTUAL DOSE  25 MG/M2
     Route: 042
     Dates: start: 20131211, end: 20131211
  36. FLUDARABINE [Suspect]
     Active Substance: FLUDARABINE PHOSPHATE
     Dosage: CYCLE 5 DAY2 ; PLANNED DOSE 25 MG/M2 , ACTUAL DOSE  25 MG/M2
     Route: 042
     Dates: start: 20140305, end: 20140305
  37. CYCLOPHOSPHAMIDE. [Suspect]
     Active Substance: CYCLOPHOSPHAMIDE
     Dosage: CYCLE 2 DAY2  ; PLANNED DOSE 250 MG/M2 , ACTUAL DOSE  250 MG/M2
     Route: 042
     Dates: start: 20131212, end: 20131212
  38. CYCLOPHOSPHAMIDE. [Suspect]
     Active Substance: CYCLOPHOSPHAMIDE
     Dosage: CYCLE 5 DAY1 ; PLANNED DOSE 250 MG/M2 , ACTUAL DOSE  250 MG/M2
     Route: 042
     Dates: start: 20140304, end: 20140304
  39. CYCLOPHOSPHAMIDE. [Suspect]
     Active Substance: CYCLOPHOSPHAMIDE
     Dosage: CYCLE 6 DAY3 ; PLANNED DOSE 250 MG/M2 , ACTUAL DOSE  250 MG/M2
     Route: 042
     Dates: start: 20140404, end: 20140404
  40. CEFEPIME [Concomitant]
     Active Substance: CEFEPIME HYDROCHLORIDE
     Dosage: DOSE 2 OTHER
     Route: 048
     Dates: start: 20140507, end: 20140514
  41. ZOFRAN [Concomitant]
     Active Substance: ONDANSETRON HYDROCHLORIDE
     Route: 048
     Dates: start: 20140115, end: 20140122
  42. IMODIUM [Concomitant]
     Active Substance: LOPERAMIDE HYDROCHLORIDE
     Route: 048
     Dates: start: 20140409, end: 20140603
  43. OBINUTUZUMAB. [Suspect]
     Active Substance: OBINUTUZUMAB
     Dosage: CYCLE 5 DAY 1; PLANNED 1000 MG , ACTUAL DOSE  1000 MG ?PLANNED INFUSION RATE 400 ACTUAL INFUSION RAT
     Route: 042
     Dates: start: 20140304, end: 20140304
  44. FLUDARABINE [Suspect]
     Active Substance: FLUDARABINE PHOSPHATE
     Dosage: CYCLE 2 DAY3  ; PLANNED DOSE 25 MG/M2 , ACTUAL DOSE  25 MG/M2
     Route: 042
     Dates: start: 20131213, end: 20131213
  45. FLUDARABINE [Suspect]
     Active Substance: FLUDARABINE PHOSPHATE
     Dosage: CYCLE 4 DAY1 ; PLANNED DOSE 25 MG/M2 , ACTUAL DOSE  25 MG/M2
     Route: 042
     Dates: start: 20140205, end: 20140205
  46. FLUDARABINE [Suspect]
     Active Substance: FLUDARABINE PHOSPHATE
     Dosage: CYCLE 4 DAY3 ; PLANNED DOSE 25 MG/M2 , ACTUAL DOSE  25 MG/M2
     Route: 042
     Dates: start: 20140207, end: 20140207
  47. CYCLOPHOSPHAMIDE. [Suspect]
     Active Substance: CYCLOPHOSPHAMIDE
     Dosage: CYCLE 3 DAY2 ; PLANNED DOSE 250 MG/M2 , ACTUAL DOSE  250 MG/M2
     Route: 042
     Dates: start: 20140109, end: 20140109
  48. NEXIUM [Concomitant]
     Active Substance: ESOMEPRAZOLE MAGNESIUM
     Indication: PROPHYLAXIS
     Route: 048
     Dates: start: 20140108, end: 20140212
  49. DAFALGAN [Concomitant]
     Active Substance: ACETAMINOPHEN
     Route: 048
     Dates: start: 20131127, end: 20140409
  50. SOLCOSERYL [Concomitant]
     Active Substance: SOLCOSERYL
     Dosage: PULP
     Route: 048
     Dates: start: 20140312, end: 20140402
  51. EMEND [Concomitant]
     Active Substance: APREPITANT
     Route: 048
     Dates: start: 20140402, end: 20140402
  52. OBINUTUZUMAB. [Suspect]
     Active Substance: OBINUTUZUMAB
     Indication: CHRONIC LYMPHOCYTIC LEUKAEMIA
     Dosage: CYCLE 1 DAY1; PLANNED 25 MG , ACTUAL DOSE  25 MG ?PLANNED INFUSION RATE 12.5 ACTUAL INFUSION RATE 25
     Route: 042
     Dates: start: 20131113, end: 20131113
  53. CYCLOPHOSPHAMIDE. [Suspect]
     Active Substance: CYCLOPHOSPHAMIDE
     Dosage: CYCLE 4 DAY3 ; PLANNED DOSE 250 MG/M2 , ACTUAL DOSE  250 MG/M2
     Route: 042
     Dates: start: 20140207, end: 20140207
  54. CYCLOPHOSPHAMIDE. [Suspect]
     Active Substance: CYCLOPHOSPHAMIDE
     Dosage: CYCLE 5 DAY2 ; PLANNED DOSE 250 MG/M2 , ACTUAL DOSE  250 MG/M2
     Route: 042
     Dates: start: 20140305, end: 20140305
  55. ALLOPURINOL. [Concomitant]
     Active Substance: ALLOPURINOL
     Indication: PROPHYLAXIS
     Dosage: BEFOR GA101?ADMINISTRATION
     Route: 048
     Dates: start: 20131112, end: 20131211
  56. DEXPANTHENOL. [Concomitant]
     Active Substance: DEXPANTHENOL
     Route: 048
     Dates: start: 20140312, end: 20140402
  57. PREDNISOLONE. [Concomitant]
     Active Substance: PREDNISOLONE
     Indication: PROPHYLAXIS
     Dosage: DAY 1 AND 2 OF CYCLE 1, THEN EVERY CYCLE ONLY DAY 1 ONE HOUR BEFOR GA101 ADMINISTRATION
     Route: 065
     Dates: start: 20131103, end: 20140402
  58. EXCIPIAL U LIPOLOTION [Concomitant]
     Route: 061
     Dates: start: 20140320, end: 20140402
  59. EMEND [Concomitant]
     Active Substance: APREPITANT
     Indication: PROPHYLAXIS
     Route: 048
     Dates: start: 20140205, end: 20140205
  60. PRIVIGEN [Concomitant]
     Active Substance: HUMAN IMMUNOGLOBULIN G
     Route: 042
     Dates: start: 20140607, end: 20140607
  61. OBINUTUZUMAB. [Suspect]
     Active Substance: OBINUTUZUMAB
     Dosage: CYCLE 6 DAY 1; PLANNED 1000 MG , ACTUAL DOSE  1000 MG ?PLANNED INFUSION RATE 400 ACTUAL INFUSION RAT
     Route: 042
     Dates: start: 20140402, end: 20140402
  62. FLUDARABINE [Suspect]
     Active Substance: FLUDARABINE PHOSPHATE
     Dosage: CYCLE 3 DAY1 ; PLANNED DOSE 25 MG/M2 , ACTUAL DOSE  25 MG/M2
     Route: 042
     Dates: start: 20140108, end: 20140108
  63. FLUDARABINE [Suspect]
     Active Substance: FLUDARABINE PHOSPHATE
     Dosage: CYCLE 6 DAY2 ; PLANNED DOSE 25 MG/M2 , ACTUAL DOSE  25 MG/M2
     Route: 042
     Dates: start: 20140403, end: 20140403
  64. CYCLOPHOSPHAMIDE. [Suspect]
     Active Substance: CYCLOPHOSPHAMIDE
     Dosage: CYCLE 2 DAY3  ; PLANNED DOSE 250 MG/M2 , ACTUAL DOSE  250 MG/M2
     Route: 042
     Dates: start: 20131213, end: 20131213
  65. BACTRIM [Concomitant]
     Active Substance: SULFAMETHOXAZOLE\TRIMETHOPRIM
     Indication: PROPHYLAXIS
     Route: 048
     Dates: start: 20131113, end: 20140723
  66. IMODIUM [Concomitant]
     Active Substance: LOPERAMIDE HYDROCHLORIDE
     Dosage: DOSE 7 UNIT NOT REPORTED,
     Route: 048
     Dates: start: 20140310, end: 20140323
  67. OBINUTUZUMAB. [Suspect]
     Active Substance: OBINUTUZUMAB
     Dosage: CYCLE 2 DAY 1; PLANNED 1000 MG , ACTUAL DOSE  1000 MG ?PLANNED INFUSION RATE 400 ACTUAL INFUSION RAT
     Route: 042
     Dates: start: 20131211, end: 20131211
  68. OBINUTUZUMAB. [Suspect]
     Active Substance: OBINUTUZUMAB
     Dosage: CYCLE 4 DAY 1; PLANNED 1000 MG , ACTUAL DOSE  1000 MG ?PLANNED INFUSION RATE 400 ACTUAL INFUSION RAT
     Route: 042
     Dates: start: 20140205, end: 20140205
  69. FLUDARABINE [Suspect]
     Active Substance: FLUDARABINE PHOSPHATE
     Dosage: CYCLE 1 DAY3; PLANNED DOSE 25 MG/M2 , ACTUAL DOSE  25 MG/M2
     Route: 042
     Dates: start: 20131115, end: 20131115
  70. FLUDARABINE [Suspect]
     Active Substance: FLUDARABINE PHOSPHATE
     Dosage: CYCLE 2 DAY2  ; PLANNED DOSE 25 MG/M2 , ACTUAL DOSE  25 MG/M2
     Route: 042
     Dates: start: 20131212, end: 20131212
  71. CYCLOPHOSPHAMIDE. [Suspect]
     Active Substance: CYCLOPHOSPHAMIDE
     Dosage: CYCLE 3 DAY3 ; PLANNED DOSE 250 MG/M2 , ACTUAL DOSE  250 MG/M2
     Route: 042
     Dates: start: 20140110, end: 20140110
  72. CYCLOPHOSPHAMIDE. [Suspect]
     Active Substance: CYCLOPHOSPHAMIDE
     Dosage: CYCLE 4 DAY2 ; PLANNED DOSE 250 MG/M2 , ACTUAL DOSE  250 MG/M2
     Route: 042
     Dates: start: 20140206, end: 20140206
  73. NEXIUM [Concomitant]
     Active Substance: ESOMEPRAZOLE MAGNESIUM
     Route: 048
     Dates: start: 20140212, end: 20140723
  74. EMEND [Concomitant]
     Active Substance: APREPITANT
     Route: 048
     Dates: start: 20140403, end: 20140404
  75. PRIVIGEN [Concomitant]
     Active Substance: HUMAN IMMUNOGLOBULIN G
     Route: 042
     Dates: start: 20140602
  76. OBINUTUZUMAB. [Suspect]
     Active Substance: OBINUTUZUMAB
     Dosage: CYCLE 1 DAY2; PLANNED 975 MG , ACTUAL DOSE  975 MG ?PLANNED INFUSION RATE 400 ACTUAL INFUSION RATE 4
     Route: 042
     Dates: start: 20131114, end: 20131114
  77. OBINUTUZUMAB. [Suspect]
     Active Substance: OBINUTUZUMAB
     Dosage: CYCLE 1 DAY 15; PLANNED 1000 MG , ACTUAL DOSE  1000 MG ?PLANNED INFUSION RATE 400 ACTUAL INFUSION RA
     Route: 042
     Dates: start: 20131127, end: 20131127
  78. OBINUTUZUMAB. [Suspect]
     Active Substance: OBINUTUZUMAB
     Dosage: CYCLE 3 DAY 1; PLANNED 1000 MG , ACTUAL DOSE  1000 MG ?PLANNED INFUSION RATE 400 ACTUAL INFUSION RAT
     Route: 042
     Dates: start: 20140108, end: 20140108

REACTIONS (1)
  - Acute myeloid leukaemia [Recovered/Resolved]

NARRATIVE: CASE EVENT DATE: 20161012
